FAERS Safety Report 5009875-9 (Version None)
Quarter: 2006Q2

REPORT INFORMATION
  Report Type: 
  Country: None (occurrence: None)
  Receive Date: 20060524
  Receipt Date: 20050719
  Transmission Date: 20061013
  Serious: Yes (Other)
  Sender: FDA-Public Use
  Company Number: PHEH2005US08026

PATIENT
  Age: 60 Year
  Sex: Male

DRUGS (9)
  1. ZOMETA [Suspect]
     Indication: PHAEOCHROMOCYTOMA
     Dosage: 4 MG EVERY 3 WEEKS
     Dates: start: 20040304
  2. OXYCONTIN [Concomitant]
  3. OXYCODONE [Concomitant]
  4. ARANESP [Concomitant]
     Dates: start: 20040101
  5. OCTREOTIDE ACETATE [Concomitant]
  6. AVASTIN [Concomitant]
  7. TARCEVA [Concomitant]
     Dates: start: 20040101
  8. CARBOPLATIN [Concomitant]
     Dates: end: 20040101
  9. CPT-11 [Concomitant]
     Dates: end: 20040101

REACTIONS (10)
  - BONE DISORDER [None]
  - DENTAL EXAMINATION ABNORMAL [None]
  - GINGIVITIS [None]
  - ORAL SOFT TISSUE DISORDER [None]
  - OSTEONECROSIS [None]
  - PAIN IN JAW [None]
  - PURULENT DISCHARGE [None]
  - RESORPTION BONE INCREASED [None]
  - SOFT TISSUE INFECTION [None]
  - SWELLING [None]
